FAERS Safety Report 13430115 (Version 1)
Quarter: 2017Q2

REPORT INFORMATION
  Report Type: Spontaneous
  Country: JP (occurrence: JP)
  Receive Date: 20170412
  Receipt Date: 20170412
  Transmission Date: 20170830
  Serious: Yes (Hospitalization, Other)
  Sender: FDA-Public Use
  Company Number: JP-BAXTER-2017BAX003473

PATIENT
  Age: 70 Year
  Sex: Male

DRUGS (14)
  1. IFEX [Suspect]
     Active Substance: IFOSFAMIDE
     Indication: METASTASES TO LUNG
     Dosage: TIP THERAPY
     Route: 041
     Dates: start: 20150728
  2. MESNA FOR INJECTION 1 GRAM [Suspect]
     Active Substance: MESNA
     Indication: SQUAMOUS CELL CARCINOMA
     Route: 041
     Dates: start: 20150729
  3. PACLITAXEL. [Suspect]
     Active Substance: PACLITAXEL
     Indication: METASTASES TO LUNG
     Dosage: TIP THERAPY
     Route: 065
     Dates: start: 20150728
  4. CISPLATIN. [Suspect]
     Active Substance: CISPLATIN
     Indication: METASTASES TO LUNG
     Dosage: TIP THERAPY
     Route: 041
     Dates: start: 20150728
  5. CISPLATIN. [Suspect]
     Active Substance: CISPLATIN
     Dosage: TIP THERAPY
     Route: 041
     Dates: start: 20150730
  6. MESNA FOR INJECTION 1 GRAM [Suspect]
     Active Substance: MESNA
     Route: 041
     Dates: start: 20150730, end: 20151112
  7. IFEX [Suspect]
     Active Substance: IFOSFAMIDE
     Indication: SQUAMOUS CELL CARCINOMA
     Route: 041
     Dates: start: 20150729
  8. OXYCONTIN [Suspect]
     Active Substance: OXYCODONE HYDROCHLORIDE
     Indication: PRODUCT USED FOR UNKNOWN INDICATION
     Route: 065
  9. CISPLATIN. [Suspect]
     Active Substance: CISPLATIN
     Indication: SQUAMOUS CELL CARCINOMA
     Dosage: TIP THERAPY
     Route: 041
     Dates: start: 20150729
  10. CISPLATIN. [Suspect]
     Active Substance: CISPLATIN
     Dosage: 2ND CYCLE OF TIP THERAPY
     Route: 041
     Dates: start: 20150820, end: 20151112
  11. IFEX [Suspect]
     Active Substance: IFOSFAMIDE
     Indication: OFF LABEL USE
     Route: 041
     Dates: start: 20150730
  12. IFEX [Suspect]
     Active Substance: IFOSFAMIDE
     Dosage: 2ND CYCLE OF TIP THERAPY
     Route: 041
     Dates: start: 20150820
  13. MESNA FOR INJECTION 1 GRAM [Suspect]
     Active Substance: MESNA
     Indication: METASTASES TO LUNG
     Route: 041
     Dates: start: 20150728
  14. PACLITAXEL. [Suspect]
     Active Substance: PACLITAXEL
     Indication: SQUAMOUS CELL CARCINOMA
     Dosage: 2ND CYCLE OF TIP THERAPY
     Route: 065
     Dates: start: 20150820

REACTIONS (2)
  - Ileus paralytic [Recovering/Resolving]
  - Neutropenia [Recovering/Resolving]

NARRATIVE: CASE EVENT DATE: 20150805
